FAERS Safety Report 5946373-X (Version None)
Quarter: 2008Q4

REPORT INFORMATION
  Report Type: 
  Country: None (occurrence: None)
  Receive Date: 20081106
  Receipt Date: 20081022
  Transmission Date: 20090506
  Serious: Yes (Hospitalization)
  Sender: FDA-Public Use
  Company Number: 2008BI028149

PATIENT
  Age: 32 Year
  Sex: Male
  Weight: 70 kg

DRUGS (3)
  1. TYSABRI [Suspect]
     Indication: RELAPSING-REMITTING MULTIPLE SCLEROSIS
     Dosage: 300 MG;QM;IV
     Route: 042
     Dates: start: 20081015, end: 20081016
  2. VIAGRA [Concomitant]
  3. . [Concomitant]

REACTIONS (2)
  - ANGINA PECTORIS [None]
  - PANIC ATTACK [None]
